FAERS Safety Report 7303329-2 (Version None)
Quarter: 2011Q1

REPORT INFORMATION
  Report Type: 
  Country: None (occurrence: None)
  Receive Date: 20110221
  Receipt Date: 20110211
  Transmission Date: 20110831
  Serious: Yes (Hospitalization, Other)
  Sender: FDA-Public Use
  Company Number: FR-BRISTOL-MYERS SQUIBB COMPANY-15548043

PATIENT
  Age: 90 Year

DRUGS (6)
  1. ISOPTIN [Concomitant]
  2. NEXIUM [Concomitant]
  3. ENALAPRIL [Concomitant]
  4. COUMADIN [Suspect]
     Route: 048
     Dates: end: 20101206
  5. CO-RENITEC [Concomitant]
  6. AUGMENTIN '125' [Suspect]

REACTIONS (6)
  - ACQUIRED HAEMOPHILIA [None]
  - ANKLE FRACTURE [None]
  - ERYSIPELAS [None]
  - EPISTAXIS [None]
  - HAEMATOMA [None]
  - MELAENA [None]
